FAERS Safety Report 17913419 (Version 2)
Quarter: 2020Q3

REPORT INFORMATION
  Report Type: Spontaneous
  Country: US (occurrence: US)
  Receive Date: 20200618
  Receipt Date: 20200916
  Transmission Date: 20201103
  Serious: Yes (Other)
  Sender: FDA-Public Use
  Company Number: US-THERAPEUTICSMD-2020TMD02417

PATIENT
  Age: 75 Year
  Sex: Female
  Weight: 72.56 kg

DRUGS (16)
  1. VITAMIND D3 [Concomitant]
     Dosage: 2000 IU
  2. OMEPRAZOLE. [Suspect]
     Active Substance: OMEPRAZOLE
     Dosage: 2 TABLETS, 2X/DAY
     Dates: start: 20200519
  3. LOSARTAN POTASSIUM. [Concomitant]
     Active Substance: LOSARTAN POTASSIUM
     Dosage: 100 MG
  4. GLUCOSAMINE WITH MSMS [Concomitant]
     Dosage: UNK, 2X/DAY
  5. LEVAQUIN [Suspect]
     Active Substance: LEVOFLOXACIN
     Indication: INFECTION
  6. POTASSIUM [Concomitant]
     Active Substance: POTASSIUM
     Dosage: UNK
     Dates: start: 1981
  7. IMVEXXY [Suspect]
     Active Substance: ESTRADIOL
     Indication: ATROPHIC VULVOVAGINITIS
     Dosage: 10 ?G, 2X/WEEK BEFORE BED
     Route: 067
     Dates: start: 20190611, end: 202005
  8. IMVEXXY [Suspect]
     Active Substance: ESTRADIOL
     Indication: URINARY TRACT INFECTION
  9. AMLODIPINE BESYLATE. [Concomitant]
     Active Substance: AMLODIPINE BESYLATE
     Dosage: 5 MG
  10. POTASSIUM [Concomitant]
     Active Substance: POTASSIUM
     Dosage: CUT BACK TO HALF
  11. LEVAQUIN [Suspect]
     Active Substance: LEVOFLOXACIN
     Indication: PLEURAL EFFUSION
     Dosage: 750 MG
     Dates: start: 202004
  12. OMEPRAZOLE. [Suspect]
     Active Substance: OMEPRAZOLE
     Indication: GASTROOESOPHAGEAL REFLUX DISEASE
     Dosage: UNK
     Dates: start: 202003, end: 20200518
  13. VALACYCLOVIR HCL [Concomitant]
     Active Substance: VALACYCLOVIR HYDROCHLORIDE
     Dosage: 500 MG
  14. IBUPROFEN. [Concomitant]
     Active Substance: IBUPROFEN
  15. ROSUVASTATIN CALCIUM. [Concomitant]
     Active Substance: ROSUVASTATIN CALCIUM
     Dosage: 40 MG
  16. CALCIUM [Concomitant]
     Active Substance: CALCIUM
     Dosage: 1200 MG, 1?2X/DAY

REACTIONS (19)
  - Arthralgia [Unknown]
  - Musculoskeletal chest pain [Recovering/Resolving]
  - Venous thrombosis limb [Unknown]
  - Joint swelling [Recovered/Resolved]
  - Muscular weakness [Recovering/Resolving]
  - Pleural effusion [Recovering/Resolving]
  - Fatigue [Recovered/Resolved]
  - Pain in extremity [Recovering/Resolving]
  - Gastrooesophageal reflux disease [Recovering/Resolving]
  - Hordeolum [Recovered/Resolved]
  - Confusional state [Unknown]
  - Asthenia [Recovered/Resolved]
  - Middle insomnia [Unknown]
  - Flank pain [Recovering/Resolving]
  - White blood cell count increased [Recovered/Resolved]
  - Infection [Unknown]
  - Peripheral swelling [Recovered/Resolved]
  - Back pain [Recovering/Resolving]
  - Off label use [Recovered/Resolved]

NARRATIVE: CASE EVENT DATE: 20190611
